FAERS Safety Report 12836531 (Version 1)
Quarter: 2016Q4

REPORT INFORMATION
  Report Type: Spontaneous
  Country: RO (occurrence: RO)
  Receive Date: 20161011
  Receipt Date: 20161011
  Transmission Date: 20170207
  Serious: Yes (Hospitalization)
  Sender: FDA-Public Use
  Company Number: RO-SA-2016SA179020

PATIENT
  Age: 57 Year

DRUGS (6)
  1. NOREPINEPHRINE [Concomitant]
     Active Substance: NOREPINEPHRINE\NOREPINEPHRINE BITARTRATE
     Indication: VASOPRESSIVE THERAPY
     Dosage: UP  TO  30  MCG/MIN
  2. FUROSEMIDE. [Concomitant]
     Active Substance: FUROSEMIDE
     Indication: POLYURIA
  3. MEROPENEM. [Suspect]
     Active Substance: MEROPENEM
     Indication: STAPHYLOCOCCAL INFECTION
     Route: 065
  4. RIFAMPICIN [Suspect]
     Active Substance: RIFAMPIN
     Indication: STAPHYLOCOCCAL INFECTION
     Route: 065
  5. VANCOMYCIN [Suspect]
     Active Substance: VANCOMYCIN
     Indication: STAPHYLOCOCCAL INFECTION
     Route: 065
  6. OXYGEN. [Concomitant]
     Active Substance: OXYGEN

REACTIONS (12)
  - Acute kidney injury [Unknown]
  - Off label use [Unknown]
  - Treatment failure [Unknown]
  - Cardiac valve vegetation [Recovering/Resolving]
  - Endocarditis bacterial [Recovering/Resolving]
  - Aortic valve incompetence [Recovering/Resolving]
  - Pyrexia [Recovering/Resolving]
  - Sepsis syndrome [Recovering/Resolving]
  - N-terminal prohormone brain natriuretic peptide increased [Recovering/Resolving]
  - Condition aggravated [Recovering/Resolving]
  - Leukocytosis [Recovering/Resolving]
  - Renal impairment [Unknown]
